FAERS Safety Report 9051825 (Version 1)
Quarter: 2013Q1

REPORT INFORMATION
  Report Type: Spontaneous
  Country: US (occurrence: US)
  Receive Date: 20130207
  Receipt Date: 20130207
  Transmission Date: 20140127
  Serious: Yes (Other)
  Sender: FDA-Public Use
  Company Number: US-BAYER-2013-014461

PATIENT
  Age: 45 Year
  Sex: Female

DRUGS (10)
  1. OCELLA [Suspect]
     Indication: MENORRHAGIA
  2. YASMIN [Suspect]
     Indication: MENORRHAGIA
  3. ROSUVASTATIN [Concomitant]
     Dosage: ? TABLET EVERY OTHER DAY
  4. HYDROCODONE W/ACETAMINOPHEN [Concomitant]
     Indication: PAIN
     Dosage: 5 MG, PRN
  5. CLORAZEPATE [Concomitant]
     Indication: ANXIETY
     Dosage: 7.5MG 3 TIMES A DAY AS NEEDED
  6. NITROFURANTOIN [Concomitant]
     Indication: PROPHYLAXIS URINARY TRACT INFECTION
     Dosage: 100 MG, POST COITAL
  7. LORATAB [Concomitant]
  8. BUFERIN [Concomitant]
  9. ZANTAC [Concomitant]
  10. NSAID^S [Concomitant]

REACTIONS (1)
  - Deep vein thrombosis [None]
